FAERS Safety Report 8992932 (Version 1)
Quarter: 2013Q1

REPORT INFORMATION
  Report Type: Report from Study
  Country: US (occurrence: US)
  Receive Date: 20130102
  Receipt Date: 20130102
  Transmission Date: 20140127
  Serious: Yes (Hospitalization)
  Sender: FDA-Public Use
  Company Number: US-JNJFOC-20121211468

PATIENT
  Age: 51 Year
  Sex: Male

DRUGS (2)
  1. REMICADE [Suspect]
     Indication: RHEUMATOID ARTHRITIS
     Route: 042
  2. TAMSULOSIN [Concomitant]
     Indication: PROSTATIC DISORDER
     Route: 065

REACTIONS (1)
  - Prostatic disorder [Recovering/Resolving]
